FAERS Safety Report 11753074 (Version 1)
Quarter: 2015Q4

REPORT INFORMATION
  Report Type: Spontaneous
  Country: US (occurrence: None)
  Receive Date: 20151117
  Receipt Date: 20151117
  Transmission Date: 20160304
  Serious: Yes (Hospitalization)
  Sender: FDA-Public Use
  Company Number: None

PATIENT
  Age: 64 Year
  Sex: Female

DRUGS (1)
  1. HARVONI [Suspect]
     Active Substance: LEDIPASVIR\SOFOSBUVIR
     Indication: HEPATITIS C
     Route: 048
     Dates: start: 20151002

REACTIONS (5)
  - Asthenia [None]
  - Influenza like illness [None]
  - Pyrexia [None]
  - Fatigue [None]
  - Blood potassium decreased [None]

NARRATIVE: CASE EVENT DATE: 20151113
